FAERS Safety Report 17347667 (Version 1)
Quarter: 2020Q1

REPORT INFORMATION
  Report Type: Spontaneous
  Country: IN (occurrence: IN)
  Receive Date: 20200130
  Receipt Date: 20200130
  Transmission Date: 20200409
  Serious: Yes (Death)
  Sender: FDA-Public Use
  Company Number: IN-PFIZER INC-2019531096

PATIENT
  Age: 59 Year
  Sex: Male

DRUGS (1)
  1. SUTENT [Suspect]
     Active Substance: SUNITINIB MALATE
     Indication: METASTATIC RENAL CELL CARCINOMA
     Dosage: 50 MG, CYCLIC (ONCE A DAY 2 WEEKS ON 1 WEEK OFF)
     Route: 048
     Dates: start: 20191205

REACTIONS (4)
  - Neoplasm progression [Unknown]
  - Cough [Unknown]
  - Dyspnoea exertional [Unknown]
  - Death [Fatal]
